FAERS Safety Report 8068789-0 (Version None)
Quarter: 2012Q1

REPORT INFORMATION
  Report Type: 
  Country: None (occurrence: None)
  Receive Date: 20120124
  Receipt Date: 20120111
  Transmission Date: 20120608
  Serious: Yes (Hospitalization)
  Sender: FDA-Public Use
  Company Number: JP-MYLANLABS-2012S1000998

PATIENT
  Age: 50 Year
  Sex: Male

DRUGS (8)
  1. SELEGILINE [Suspect]
     Route: 065
     Dates: start: 20050501
  2. CARBAMAZEPINE [Suspect]
     Indication: INTENTIONAL OVERDOSE
     Route: 065
     Dates: start: 20101101
  3. NITRAZEPAM [Suspect]
     Indication: INTENTIONAL OVERDOSE
     Route: 065
     Dates: start: 20101101
  4. SELEGILINE [Suspect]
     Route: 065
     Dates: start: 20050501
  5. SELEGILINE [Suspect]
     Indication: INTENTIONAL OVERDOSE
     Route: 065
     Dates: start: 20101101
  6. SELEGILINE [Suspect]
     Indication: DEPRESSION
     Route: 065
     Dates: start: 20101101
  7. VALPROIC ACID [Suspect]
     Indication: INTENTIONAL OVERDOSE
     Route: 065
     Dates: start: 20101101
  8. TRAZODONE HCL [Suspect]
     Indication: INTENTIONAL OVERDOSE
     Route: 065
     Dates: start: 20101101

REACTIONS (7)
  - INTENTIONAL OVERDOSE [None]
  - COMA [None]
  - SEROTONIN SYNDROME [None]
  - RESPIRATORY FAILURE [None]
  - PNEUMONIA ASPIRATION [None]
  - HALLUCINATION, VISUAL [None]
  - CONVULSION [None]
